FAERS Safety Report 8790933 (Version 1)
Quarter: 2012Q4

REPORT INFORMATION
  Report Type: Spontaneous
  Country: US (occurrence: None)
  Receive Date: 20120913
  Receipt Date: 20120913
  Transmission Date: 20130627
  Serious: Yes (Other)
  Sender: FDA-Public Use
  Company Number: None

PATIENT
  Age: 30 Year
  Sex: Female
  Weight: 64.41 kg

DRUGS (2)
  1. ESCITALOPRAM [Suspect]
     Indication: GENERALIZED ANXIETY DISORDER
     Route: 048
     Dates: start: 20120903, end: 20120912
  2. ESCITALOPRAM [Suspect]
     Indication: GENERALIZED ANXIETY DISORDER
     Route: 048
     Dates: start: 20120903, end: 20120912

REACTIONS (6)
  - Pregnancy [None]
  - Maternal exposure timing unspecified [None]
  - Depression [None]
  - Panic attack [None]
  - Rash [None]
  - Product substitution issue [None]
